FAERS Safety Report 7321866-1 (Version None)
Quarter: 2011Q1

REPORT INFORMATION
  Report Type: 
  Country: None (occurrence: None)
  Receive Date: 20110217
  Receipt Date: 20110214
  Transmission Date: 20110831
  Serious: Yes (Hospitalization, Other)
  Sender: FDA-Public Use
  Company Number: NPIL/SEV/H/2011/16

PATIENT
  Age: 32 Year
  Sex: Male
  Weight: 79 kg

DRUGS (4)
  1. SUCCINYL CHOLINE [Concomitant]
  2. KETAMINE HCL [Concomitant]
  3. THIOPENTAL SODIUM [Concomitant]
  4. SOJOURN [Suspect]
     Indication: JAW FRACTURE
     Dosage: 2% ONCE INHALATION
     Route: 055

REACTIONS (3)
  - VENTRICULAR FIBRILLATION [None]
  - VENTRICULAR TACHYCARDIA [None]
  - VENTRICULAR EXTRASYSTOLES [None]
